FAERS Safety Report 18424247 (Version 2)
Quarter: 2020Q4

REPORT INFORMATION
  Report Type: Spontaneous
  Country: US (occurrence: US)
  Receive Date: 20201025
  Receipt Date: 20201112
  Transmission Date: 20210114
  Serious: Yes (Disabling, Other)
  Sender: FDA-Public Use
  Company Number: US-NAPPMUNDI-USA-2020-0151700

PATIENT
  Sex: Male

DRUGS (7)
  1. HYDROCODONE BITARTRATE AND ACETAMINOPHEN [Suspect]
     Active Substance: ACETAMINOPHEN\HYDROCODONE BITARTRATE
     Indication: PRODUCT USED FOR UNKNOWN INDICATION
     Dosage: 5/325 MG
     Route: 048
  2. HYDROCODONE BITARTRATE AND ACETAMINOPHEN [Suspect]
     Active Substance: ACETAMINOPHEN\HYDROCODONE BITARTRATE
     Dosage: 5/500 MG
     Route: 048
  3. OXYCODONE HYDROCHLORIDE (SIMILAR TO NDA 22-272) [Suspect]
     Active Substance: OXYCODONE HYDROCHLORIDE
     Indication: HEADACHE
     Dosage: UNKNOWN
     Route: 048
     Dates: start: 2016, end: 2018
  4. OXYCODONE/ ACETAMINOPHEN TABLETS [Suspect]
     Active Substance: ACETAMINOPHEN\OXYCODONE HYDROCHLORIDE
     Indication: PAIN
     Dosage: 5/325 MG, Q6H
     Route: 048
  5. OXYCONTIN [Suspect]
     Active Substance: OXYCODONE HYDROCHLORIDE
     Indication: PRODUCT USED FOR UNKNOWN INDICATION
     Dosage: UNK
     Route: 048
  6. TRAMADOL. [Suspect]
     Active Substance: TRAMADOL
     Indication: PAIN
  7. TRAMADOL. [Suspect]
     Active Substance: TRAMADOL
     Indication: HEADACHE
     Dosage: 50 MG, UNK
     Route: 048
     Dates: start: 2015

REACTIONS (31)
  - Sleep apnoea syndrome [Unknown]
  - Somnolence [Unknown]
  - Drug withdrawal syndrome [Unknown]
  - Social avoidant behaviour [Unknown]
  - Suicidal ideation [Unknown]
  - Mental disorder [Unknown]
  - Injury [Unknown]
  - Depression [Unknown]
  - Dizziness [Unknown]
  - Disability [Unknown]
  - Serotonin syndrome [Unknown]
  - Emotional distress [Unknown]
  - Confusional state [Unknown]
  - Adrenal insufficiency [Unknown]
  - General physical condition abnormal [Unknown]
  - Affective disorder [Unknown]
  - Anxiety [Unknown]
  - Drug dependence [Recovered/Resolved]
  - Drug ineffective [Unknown]
  - Androgen deficiency [Unknown]
  - Fatigue [Unknown]
  - Headache [Unknown]
  - Blood pressure increased [Unknown]
  - Blood urine present [Unknown]
  - Constipation [Unknown]
  - Heart rate irregular [Unknown]
  - Agitation [Unknown]
  - Hallucination [Unknown]
  - Sleep disorder [Unknown]
  - Speech disorder [Unknown]
  - Amnesia [Unknown]
